FAERS Safety Report 10072284 (Version 1)
Quarter: 2014Q2

REPORT INFORMATION
  Report Type: Spontaneous
  Country: US (occurrence: US)
  Receive Date: 20140411
  Receipt Date: 20140411
  Transmission Date: 20141212
  Serious: Yes (Other)
  Sender: FDA-Public Use
  Company Number: US-BAYER-2014-052886

PATIENT
  Age: 36 Year
  Sex: Female
  Weight: 55.78 kg

DRUGS (2)
  1. MIRENA [Suspect]
     Dosage: 20 MCG/24HR, CONT
     Route: 015
     Dates: start: 20110126, end: 20110211
  2. PRENATAL [Concomitant]
     Dosage: UNK
     Dates: start: 20081102

REACTIONS (3)
  - Device dislocation [None]
  - Vulvovaginal pain [None]
  - Device dislocation [None]
